FAERS Safety Report 21443983 (Version 2)
Quarter: 2022Q4

REPORT INFORMATION
  Report Type: Spontaneous
  Country: JP (occurrence: None)
  Receive Date: 20221012
  Receipt Date: 20221102
  Transmission Date: 20230113
  Serious: Yes (Hospitalization)
  Sender: FDA-Public Use
  Company Number: JP-Orion Corporation ORION PHARMA-ENTC2022-0200

PATIENT
  Age: 78 Year
  Sex: Male

DRUGS (1)
  1. STALEVO [Suspect]
     Active Substance: CARBIDOPA\ENTACAPONE\LEVODOPA
     Indication: Product used for unknown indication
     Dosage: DOSE OF L100+L50 (L100: LEVODOPA 100MG, CARBIDOPA 10MG, ENTACAPONE 100MG (2DF IN MORNING, 1DF AT NOO
     Route: 048

REACTIONS (1)
  - Ileus [Unknown]
